FAERS Safety Report 19956845 (Version 1)
Quarter: 2021Q4

REPORT INFORMATION
  Report Type: Spontaneous
  Country: DE (occurrence: DE)
  Receive Date: 20211014
  Receipt Date: 20211014
  Transmission Date: 20220303
  Serious: Yes (Hospitalization, Other)
  Sender: FDA-Public Use
  Company Number: None

PATIENT
  Age: 34 Year
  Sex: Female

DRUGS (4)
  1. ORGALUTRAN [Suspect]
     Active Substance: GANIRELIX ACETATE
     Indication: Assisted reproductive technology
     Dosage: 7TH -10TH CYCLE DAY
  2. FOLLITROPIN BETA [Suspect]
     Active Substance: FOLLITROPIN BETA
     Indication: Assisted reproductive technology
     Dosage: 3RD - 10TH CYCLE DAY
  3. CHORIOGONADOTROPIN ALFA [Suspect]
     Active Substance: CHORIOGONADOTROPIN ALFA
     Indication: Assisted reproductive technology
     Dosage: 11TH CYCLE DAY
  4. PROGESTERONE [Suspect]
     Active Substance: PROGESTERONE
     Indication: Assisted reproductive technology
     Dosage: 14TH - 31TH CYCLE DAY

REACTIONS (3)
  - Abdominal discomfort [Unknown]
  - Dyspnoea [Unknown]
  - Ovarian hyperstimulation syndrome [Unknown]

NARRATIVE: CASE EVENT DATE: 20210922
